FAERS Safety Report 8803931 (Version 1)
Quarter: 2012Q4

REPORT INFORMATION
  Report Type: 
  Country: US (occurrence: US)
  Receive Date: 20120924
  Receipt Date: 20120924
  Transmission Date: 20130627
  Serious: No
  Sender: FDA-Public Use
  Company Number: US-PFIZER INC-2012235018

PATIENT

DRUGS (1)
  1. CHILDRENS ADVIL [Suspect]
     Indication: ANTIPYRESIS
     Dosage: UNK
     Dates: end: 2012

REACTIONS (1)
  - Drug ineffective [Unknown]
